FAERS Safety Report 7366896-9 (Version None)
Quarter: 2011Q1

REPORT INFORMATION
  Report Type: 
  Country: None (occurrence: None)
  Receive Date: 20110322
  Receipt Date: 20100907
  Transmission Date: 20110831
  Serious: Yes (Other)
  Sender: FDA-Public Use
  Company Number: B0674510A

PATIENT
  Sex: Male

DRUGS (7)
  1. UNKNOWN MEDICATION [Concomitant]
     Route: 065
  2. CIALIS [Concomitant]
  3. AVANDIA [Suspect]
     Dosage: 8MG PER DAY
     Route: 048
     Dates: start: 20050101, end: 20070522
  4. GLUCOPHAGE [Concomitant]
     Route: 065
  5. FUROSEMIDE [Concomitant]
     Route: 065
  6. SIMVASTATIN [Concomitant]
  7. GLUCOBAY [Concomitant]
     Route: 065

REACTIONS (4)
  - CARDIAC FAILURE CONGESTIVE [None]
  - JOINT SWELLING [None]
  - FATIGUE [None]
  - CARDIAC OUTPUT DECREASED [None]
